FAERS Safety Report 6834034-4 (Version None)
Quarter: 2010Q3

REPORT INFORMATION
  Report Type: 
  Country: None (occurrence: None)
  Receive Date: 20100712
  Receipt Date: 20070409
  Transmission Date: 20110219
  Serious: No
  Sender: FDA-Public Use
  Company Number: US-PFIZER INC-2007029511

PATIENT
  Sex: Female
  Weight: 57.61 kg

DRUGS (3)
  1. CHANTIX [Suspect]
     Indication: SMOKING CESSATION THERAPY
     Route: 048
     Dates: start: 20070409
  2. CYMBALTA [Concomitant]
  3. XANAX [Concomitant]
     Indication: INSOMNIA

REACTIONS (5)
  - ANXIETY [None]
  - HOMICIDAL IDEATION [None]
  - IRRITABILITY [None]
  - NAUSEA [None]
  - NERVOUSNESS [None]
